FAERS Safety Report 7998180-4 (Version None)
Quarter: 2011Q4

REPORT INFORMATION
  Report Type: 
  Country: None (occurrence: None)
  Receive Date: 20111221
  Receipt Date: 20110325
  Transmission Date: 20120403
  Serious: No
  Sender: FDA-Public Use
  Company Number: US-GLAXOSMITHKLINE-A0920071A

PATIENT
  Age: 64 Year
  Sex: Female

DRUGS (4)
  1. HYZAAR [Concomitant]
  2. METFORMIN HCL [Concomitant]
  3. VITAMIN [Concomitant]
  4. LOVAZA [Suspect]
     Indication: BLOOD TRIGLYCERIDES INCREASED
     Dosage: 2CAP TWICE PER DAY
     Route: 048

REACTIONS (3)
  - PRODUCT QUALITY ISSUE [None]
  - ABDOMINAL DISCOMFORT [None]
  - NAUSEA [None]
